FAERS Safety Report 13023406 (Version 7)
Quarter: 2018Q3

REPORT INFORMATION
  Report Type: Report from Study
  Country: CN (occurrence: CN)
  Receive Date: 20161213
  Receipt Date: 20180724
  Transmission Date: 20181010
  Serious: Yes (Hospitalization)
  Sender: FDA-Public Use
  Company Number: CN-ASTELLAS-2016JP021522AA

PATIENT
  Age: 66 Year
  Sex: Male
  Weight: 52 kg

DRUGS (8)
  1. HEPARIN CALCIUM [Concomitant]
     Active Substance: HEPARIN CALCIUM
     Indication: VENOUS THROMBOSIS LIMB
     Dosage: UNK UNK, UNKNOWN FREQ.
     Route: 042
     Dates: start: 201612, end: 201612
  2. DIOSMIN [Concomitant]
     Active Substance: DIOSMIN
     Indication: VENOUS THROMBOSIS LIMB
     Dosage: 0.45 G, TWICE DAILY
     Route: 048
     Dates: start: 20161219
  3. ZOLADEX [Concomitant]
     Active Substance: GOSERELIN ACETATE
     Indication: HORMONE-REFRACTORY PROSTATE CANCER
     Dosage: 3.6 MG, EVERY 4 WEEKS
     Route: 058
     Dates: start: 201306
  4. RIVAROXABAN [Concomitant]
     Active Substance: RIVAROXABAN
     Indication: VENOUS THROMBOSIS LIMB
     Route: 048
     Dates: start: 20161219
  5. ENZALUTAMIDE [Suspect]
     Active Substance: ENZALUTAMIDE
     Indication: PROSTATE CANCER
     Route: 048
     Dates: start: 20150107
  6. AMLODIPINE BESYLATE. [Concomitant]
     Active Substance: AMLODIPINE BESYLATE
     Indication: HYPERTENSION
     Route: 048
     Dates: start: 201406
  7. ZOLEDRONIC ACID [Concomitant]
     Active Substance: ZOLEDRONIC ACID
     Indication: HORMONE-REFRACTORY PROSTATE CANCER
     Route: 042
     Dates: start: 20121030
  8. OPTIRAY [Concomitant]
     Active Substance: IOVERSOL
     Indication: VENOUS THROMBOSIS LIMB
     Dosage: UNK, UNKNOWN FREQ.
     Route: 042
     Dates: start: 201612, end: 201612

REACTIONS (2)
  - Cervical spinal stenosis [Recovering/Resolving]
  - Venous thrombosis limb [Recovered/Resolved]

NARRATIVE: CASE EVENT DATE: 20161208
